FAERS Safety Report 9414536 (Version 2)
Quarter: 2013Q3

REPORT INFORMATION
  Report Type: Spontaneous
  Country: US (occurrence: US)
  Receive Date: 20130723
  Receipt Date: 20130812
  Transmission Date: 20140515
  Serious: No
  Sender: FDA-Public Use
  Company Number: US-009507513-1307USA011113

PATIENT
  Sex: Female
  Weight: 67.12 kg

DRUGS (4)
  1. CLARITIN [Suspect]
     Indication: SINUS DISORDER
     Dosage: UNK, QD
     Route: 048
     Dates: start: 2012, end: 2013
  2. CLARITIN [Suspect]
     Indication: MEDICAL OBSERVATION
  3. CRESTOR [Concomitant]
     Indication: BLOOD CHOLESTEROL ABNORMAL
     Dosage: UNK, UNKNOWN
  4. PREMARIN [Concomitant]
     Indication: BLOOD OESTROGEN
     Dosage: UNK, UNKNOWN

REACTIONS (2)
  - Sinusitis [Not Recovered/Not Resolved]
  - Product physical issue [Unknown]
